FAERS Safety Report 5123011-X (Version None)
Quarter: 2006Q4

REPORT INFORMATION
  Report Type: 
  Country: None (occurrence: None)
  Receive Date: 20061009
  Receipt Date: 20061003
  Transmission Date: 20070319
  Serious: Yes (Hospitalization)
  Sender: FDA-Public Use
  Company Number: AU-ROCHE-465696

PATIENT
  Age: 79 Year
  Sex: Male
  Weight: 80 kg

DRUGS (5)
  1. CEFTRIAXONE SODIUM [Suspect]
     Route: 065
     Dates: start: 20060619, end: 20060625
  2. METHOTREXATE [Suspect]
     Indication: RHEUMATOID ARTHRITIS
     Route: 030
  3. C-FLOX [Suspect]
     Route: 048
     Dates: start: 20060623
  4. LOSEC [Concomitant]
     Dosage: REPORTED AS LONG TERM (L TERM).
  5. FOLIC ACID [Concomitant]
     Indication: RHEUMATOID ARTHRITIS
     Dosage: DOSE AND UNIT REPORTED AS: 5.0 INFECTIOUS UNITS/ML.

REACTIONS (4)
  - ARTHRALGIA [None]
  - BONE PAIN [None]
  - MYALGIA [None]
  - RASH [None]
